FAERS Safety Report 17421089 (Version 1)
Quarter: 2020Q1

REPORT INFORMATION
  Report Type: Spontaneous
  Country: GB (occurrence: GB)
  Receive Date: 20200214
  Receipt Date: 20200214
  Transmission Date: 20200409
  Serious: Yes (Other)
  Sender: FDA-Public Use
  Company Number: NVSC2020GB036291

PATIENT
  Age: 27 Year
  Sex: Female

DRUGS (1)
  1. DOXYCYCLINE HYCLATE. [Suspect]
     Active Substance: DOXYCYCLINE HYCLATE
     Indication: SINUSITIS
     Dosage: 100 MG
     Route: 048
     Dates: start: 20191022, end: 20191029

REACTIONS (7)
  - Thinking abnormal [Unknown]
  - Fatigue [Unknown]
  - Tremor [Unknown]
  - Depression [Unknown]
  - Anxiety [Recovering/Resolving]
  - Depersonalisation/derealisation disorder [Unknown]
  - Nausea [Unknown]

NARRATIVE: CASE EVENT DATE: 20191022
